FAERS Safety Report 6166681-X (Version None)
Quarter: 2009Q2

REPORT INFORMATION
  Report Type: 
  Country: None (occurrence: None)
  Receive Date: 20090423
  Receipt Date: 20090423
  Transmission Date: 20091009
  Serious: Yes (Hospitalization)
  Sender: FDA-Public Use
  Company Number: None

PATIENT
  Sex: Female
  Weight: 67.1324 kg

DRUGS (2)
  1. CARBOPLATIN [Suspect]
     Dosage: 689 Q 21 DAYS IV DRIP
     Route: 041
     Dates: start: 20090414, end: 20090414
  2. PACLITAXEL [Suspect]
     Dosage: 352 Q 21 DAYS IV DRIP
     Route: 041
     Dates: start: 20090414, end: 20090414

REACTIONS (4)
  - ABDOMINAL PAIN [None]
  - FLANK PAIN [None]
  - HYDRONEPHROSIS [None]
  - NEPHROLITHIASIS [None]
